FAERS Safety Report 4371809-8 (Version None)
Quarter: 2004Q2

REPORT INFORMATION
  Report Type: 
  Country: None (occurrence: None)
  Receive Date: 20040602
  Receipt Date: 20040520
  Transmission Date: 20050107
  Serious: Yes (Hospitalization)
  Sender: FDA-Public Use
  Company Number: 20040500310

PATIENT
  Age: 33 Year
  Sex: Male
  Weight: 64.4 kg

DRUGS (13)
  1. HEPARIN (BAXTER) [Suspect]
     Indication: DEEP VEIN THROMBOSIS
     Dosage: 5000 UNITS BID SC
     Route: 058
     Dates: start: 20040331
  2. WARFARIN SODIUM [Suspect]
     Indication: ANTICOAGULANT THERAPY
     Dosage: 5 MG PO
     Route: 048
     Dates: start: 20040401
  3. LOVENOX [Suspect]
     Indication: ANTICOAGULANT THERAPY
     Dates: start: 20040331
  4. DEXAMETHASONE [Suspect]
     Indication: MENINGITIS
     Dosage: 10 MG IV
     Route: 042
     Dates: start: 20040314, end: 20040325
  5. DEXAMETHASONE [Suspect]
     Indication: MENINGITIS
     Dosage: 5 MG IV
     Route: 042
     Dates: start: 20040314, end: 20040325
  6. PROCRIT (EPOETIN ALFA INJECTION) [Concomitant]
  7. PLACEBO [Concomitant]
  8. DOCUSATE [Concomitant]
  9. POTASSIUM CHLORIDE [Concomitant]
  10. PROTONIX [Concomitant]
  11. MULTI-VITAMINS [Concomitant]
  12. MICOTIN CREAM (MICONAZOLE NITRATE) [Concomitant]
  13. MICONAZOLE 2% CREAM WITH ZINC (MICONAZOLE/ZINC OXIDE) [Concomitant]

REACTIONS (4)
  - HEADACHE [None]
  - INTERNATIONAL NORMALISED RATIO INCREASED [None]
  - PULMONARY EMBOLISM [None]
  - SUBDURAL HAEMATOMA [None]
